FAERS Safety Report 11858277 (Version 19)
Quarter: 2018Q3

REPORT INFORMATION
  Report Type: Spontaneous
  Country: BR (occurrence: BR)
  Receive Date: 20151222
  Receipt Date: 20180703
  Transmission Date: 20181010
  Serious: Yes (Hospitalization, Other)
  Sender: FDA-Public Use
  Company Number: BR-GLAXOSMITHKLINE-BR2015GSK179752

PATIENT
  Age: 50 Year
  Sex: Female
  Weight: 82 kg

DRUGS (7)
  1. BENLYSTA [Suspect]
     Active Substance: BELIMUMAB
     Dosage: UNK
     Dates: start: 20171116
  2. BENLYSTA [Suspect]
     Active Substance: BELIMUMAB
     Dosage: UNK
     Dates: start: 20171214
  3. FLUOXETINE [Concomitant]
     Active Substance: FLUOXETINE HYDROCHLORIDE
     Indication: ANTIDEPRESSANT THERAPY
     Dosage: UNK
  4. BENLYSTA [Suspect]
     Active Substance: BELIMUMAB
     Indication: SYSTEMIC LUPUS ERYTHEMATOSUS
     Dosage: UNK
     Route: 042
     Dates: start: 20150409
  5. BENLYSTA [Suspect]
     Active Substance: BELIMUMAB
     Dosage: UNK
     Dates: start: 20170810
  6. BENLYSTA [Suspect]
     Active Substance: BELIMUMAB
     Dosage: UNK
     Dates: start: 20170914
  7. BENLYSTA [Suspect]
     Active Substance: BELIMUMAB
     Dosage: UNK
     Dates: start: 20170706

REACTIONS (30)
  - Malaise [Unknown]
  - Diarrhoea [Unknown]
  - Pain in extremity [Unknown]
  - Dyspnoea [Not Recovered/Not Resolved]
  - Fall [Unknown]
  - Asthenia [Unknown]
  - Drug dose omission [Unknown]
  - Dizziness [Recovered/Resolved]
  - Arthralgia [Unknown]
  - Nervousness [Unknown]
  - Pain [Unknown]
  - Chest pain [Unknown]
  - Speech disorder [Unknown]
  - Vomiting [Unknown]
  - Diabetes mellitus [Unknown]
  - Systemic lupus erythematosus [Unknown]
  - Anaemia [Unknown]
  - Emphysema [Unknown]
  - Muscular weakness [Unknown]
  - Stomach mass [Unknown]
  - Pneumonia [Unknown]
  - Pulmonary pain [Unknown]
  - Weight increased [Unknown]
  - Weight decreased [Unknown]
  - Inappropriate schedule of drug administration [Recovered/Resolved]
  - Circumstance or information capable of leading to medication error [Recovered/Resolved]
  - Asthma [Unknown]
  - Oral pain [Unknown]
  - Influenza [Not Recovered/Not Resolved]
  - Osteoporosis [Unknown]

NARRATIVE: CASE EVENT DATE: 20160121
